FAERS Safety Report 6406082-X (Version None)
Quarter: 2009Q4

REPORT INFORMATION
  Report Type: 
  Country: None (occurrence: None)
  Receive Date: 20091016
  Receipt Date: 20091016
  Transmission Date: 20100525
  Serious: Yes (Death)
  Sender: FDA-Public Use
  Company Number: None

PATIENT
  Age: 53 Year
  Sex: Male
  Weight: 77.1 kg

DRUGS (1)
  1. AMIODARONE HCL [Suspect]
     Indication: ATRIAL FIBRILLATION
     Dosage: 200MG TWICE DAILY PO
     Route: 048

REACTIONS (4)
  - HYPERHIDROSIS [None]
  - INCREASED APPETITE [None]
  - PALPITATIONS [None]
  - VENTRICULAR TACHYCARDIA [None]
